FAERS Safety Report 5394423-4 (Version None)
Quarter: 2007Q3

REPORT INFORMATION
  Report Type: 
  Country: None (occurrence: None)
  Receive Date: 20070723
  Receipt Date: 20070503
  Transmission Date: 20080115
  Serious: No
  Sender: FDA-Public Use
  Company Number: US-AMGEN-US208672

PATIENT
  Sex: Male

DRUGS (4)
  1. VECTIBIX [Suspect]
     Indication: COLORECTAL CANCER
     Route: 042
     Dates: start: 20070110
  2. CAMPTOSAR [Suspect]
     Route: 065
     Dates: start: 20070110, end: 20070404
  3. LEUCOVORIN CALCIUM [Concomitant]
     Route: 065
     Dates: start: 20070110, end: 20070404
  4. FLUOROURACIL [Concomitant]
     Route: 065
     Dates: start: 20070110, end: 20070404

REACTIONS (1)
  - LACRIMATION INCREASED [None]
